FAERS Safety Report 21170226 (Version 1)
Quarter: 2022Q3

REPORT INFORMATION
  Report Type: Other
  Country: FR (occurrence: FR)
  Receive Date: 20220804
  Receipt Date: 20220804
  Transmission Date: 20221027
  Serious: Yes (Other)
  Sender: FDA-Public Use
  Company Number: FR-002147023-NVSC2022FR165409

PATIENT

DRUGS (2)
  1. RITUXIMAB [Suspect]
     Active Substance: RITUXIMAB
     Indication: Anti-neutrophil cytoplasmic antibody positive vasculitis
     Dosage: 500 MG (MAINTENANCE) ADMINISTERED 4 OR 5 TIMES WITH EACH INFUSION SPACED 6 MONTHS APART?INDUCTION 4
     Route: 041
  2. PREDNISONE [Suspect]
     Active Substance: PREDNISONE
     Indication: Anti-neutrophil cytoplasmic antibody positive vasculitis
     Route: 065

REACTIONS (1)
  - Arthritis bacterial [Unknown]
